FAERS Safety Report 5670255-4 (Version None)
Quarter: 2008Q1

REPORT INFORMATION
  Report Type: 
  Country: None (occurrence: None)
  Receive Date: 20080318
  Receipt Date: 20080307
  Transmission Date: 20080703
  Serious: Yes (Other)
  Sender: FDA-Public Use
  Company Number: US-JNJFOC-20080105452

PATIENT
  Sex: Female
  Weight: 77.11 kg

DRUGS (10)
  1. FENTANYL TRANSDERMAL SYSTEM [Suspect]
     Indication: SPINAL OSTEOARTHRITIS
     Route: 062
  2. FENTANYL TRANSDERMAL SYSTEM [Suspect]
     Indication: FIBROMYALGIA
     Route: 062
  3. FENTANYL TRANSDERMAL SYSTEM [Suspect]
     Indication: PAIN
     Route: 062
  4. VERAPAMIL EXTENDED-RELEASE [Concomitant]
     Indication: BLOOD PRESSURE
     Route: 048
  5. LOPRESSOR [Concomitant]
     Indication: BLOOD PRESSURE
     Route: 048
  6. CLONIDINE [Concomitant]
     Indication: BLOOD PRESSURE
     Route: 048
  7. QUINAPRIL HCL [Concomitant]
     Indication: BLOOD PRESSURE
     Route: 048
  8. MAXZIDE [Concomitant]
     Indication: BLOOD PRESSURE
     Dosage: ^37.5-25^
     Route: 048
  9. LEVOTHYROXINE SODIUM [Concomitant]
     Indication: THYROID DISORDER
     Route: 048
  10. PERCOCET [Concomitant]
     Indication: BREAKTHROUGH PAIN
     Dosage: UP TO 4 TABLETS DAILY
     Route: 048

REACTIONS (5)
  - CATARACT [None]
  - DRUG ADMINISTERED AT INAPPROPRIATE SITE [None]
  - PHARMACEUTICAL PRODUCT COMPLAINT [None]
  - VISUAL DISTURBANCE [None]
  - WRONG TECHNIQUE IN DRUG USAGE PROCESS [None]
